FAERS Safety Report 22254992 (Version 1)
Quarter: 2023Q2

REPORT INFORMATION
  Report Type: Spontaneous
  Country: US (occurrence: None)
  Receive Date: 20230424
  Receipt Date: 20230424
  Transmission Date: 20230722
  Serious: No
  Sender: FDA-Public Use
  Company Number: None

PATIENT
  Age: 20 Year
  Sex: Female

DRUGS (1)
  1. RINVOQ [Suspect]
     Active Substance: UPADACITINIB
     Indication: Dermatitis atopic
     Dosage: OTHER QUANTITY : TAKE 1 ATBLET;?FREQUENCY : DAILY;?
     Route: 048
     Dates: start: 202303

REACTIONS (2)
  - Pharyngitis streptococcal [None]
  - Acne [None]
